FAERS Safety Report 20767945 (Version 3)
Quarter: 2022Q2

REPORT INFORMATION
  Report Type: Spontaneous
  Country: BR (occurrence: BR)
  Receive Date: 20220429
  Receipt Date: 20220602
  Transmission Date: 20220720
  Serious: Yes (Other)
  Sender: FDA-Public Use
  Company Number: BR-PFIZER INC-202200603806

PATIENT
  Sex: Female

DRUGS (2)
  1. ENBREL [Suspect]
     Active Substance: ETANERCEPT
     Indication: Product used for unknown indication
     Dosage: UNK
     Route: 065
     Dates: start: 2012
  2. ENBREL [Suspect]
     Active Substance: ETANERCEPT
     Dosage: UNK
     Route: 065

REACTIONS (17)
  - Rheumatoid arthritis [Unknown]
  - Pneumonia [Unknown]
  - COVID-19 [Unknown]
  - Illness [Unknown]
  - Loss of personal independence in daily activities [Unknown]
  - Somnolence [Unknown]
  - Irritability [Unknown]
  - Hyperhidrosis [Unknown]
  - Chills [Unknown]
  - Abdominal discomfort [Unknown]
  - Pain [Unknown]
  - Joint swelling [Unknown]
  - Gait disturbance [Unknown]
  - Drug ineffective [Unknown]
  - Infection [Unknown]
  - Urticaria [Unknown]
  - Headache [Unknown]
